FAERS Safety Report 8255009-7 (Version None)
Quarter: 2012Q2

REPORT INFORMATION
  Report Type: 
  Country: None (occurrence: None)
  Receive Date: 20120403
  Receipt Date: 20120328
  Transmission Date: 20120825
  Serious: Yes (Life-Threatening, Hospitalization, Disabling)
  Sender: FDA-Public Use
  Company Number: US-AMGEN-USASP2012020115

PATIENT
  Age: 75 Year
  Sex: Male
  Weight: 74.83 kg

DRUGS (2)
  1. METHOTREXATE [Concomitant]
     Dosage: 17.5 MG, QWK
     Dates: start: 20031101, end: 20111001
  2. ENBREL [Suspect]
     Indication: RHEUMATOID ARTHRITIS
     Dosage: 25 MG, 2 TIMES/WK
     Route: 058
     Dates: start: 20050329, end: 20110421

REACTIONS (2)
  - TONSIL CANCER [None]
  - METASTASES TO LUNG [None]
